FAERS Safety Report 19278707 (Version 1)
Quarter: 2021Q2

REPORT INFORMATION
  Report Type: Spontaneous
  Country: US (occurrence: US)
  Receive Date: 20210520
  Receipt Date: 20210520
  Transmission Date: 20210717
  Serious: Yes (Other)
  Sender: FDA-Public Use
  Company Number: None

PATIENT
  Age: 60 Year
  Sex: Female

DRUGS (1)
  1. GLATIRAMER PFS 40MG/ML [Suspect]
     Active Substance: GLATIRAMER ACETATE
     Dosage: OTHER FREQUENCY:OTHER;?
     Route: 058

REACTIONS (2)
  - Neoplasm malignant [None]
  - Therapy non-responder [None]

NARRATIVE: CASE EVENT DATE: 20210520
